FAERS Safety Report 6195072-0 (Version None)
Quarter: 2009Q2

REPORT INFORMATION
  Report Type: 
  Country: None (occurrence: None)
  Receive Date: 20090514
  Receipt Date: 20090226
  Transmission Date: 20091009
  Serious: Yes (Death, Congenital Anomaly)
  Sender: FDA-Public Use
  Company Number: 060001L09TWN

PATIENT
  Age: 23 Week
  Sex: Female

DRUGS (2)
  1. CLOMIPHENE CITRATE [Suspect]
     Indication: OVARIAN DISORDER
     Dosage: OTHER
  2. MENOTROPINS [Suspect]
     Indication: OVARIAN DISORDER
     Dosage: OTHER

REACTIONS (9)
  - ABDOMINAL WALL ANOMALY [None]
  - CONGENITAL ANOMALY [None]
  - CONGENITAL HEPATOBILIARY ANOMALY [None]
  - CONGENITAL SCOLIOSIS [None]
  - DYSMORPHISM [None]
  - ENCEPHALOCELE [None]
  - LIMB MALFORMATION [None]
  - MATERNAL DRUGS AFFECTING FOETUS [None]
  - PULMONARY MALFORMATION [None]
